FAERS Safety Report 10168037 (Version 1)
Quarter: 2014Q2

REPORT INFORMATION
  Report Type: Spontaneous
  Country: US (occurrence: US)
  Receive Date: 20140512
  Receipt Date: 20140512
  Transmission Date: 20141212
  Serious: No
  Sender: FDA-Public Use
  Company Number: US-PFIZER INC-2014126707

PATIENT
  Sex: Female

DRUGS (2)
  1. SERTRALINE HCL [Suspect]
     Dosage: 50 MG, UNK
     Dates: end: 2014
  2. SERTRALINE HCL [Suspect]
     Dosage: 75 MG, UNK
     Dates: start: 201404

REACTIONS (6)
  - Drug ineffective [Unknown]
  - Nervousness [Unknown]
  - Anxiety [Unknown]
  - Fatigue [Unknown]
  - Lethargy [Unknown]
  - Malaise [Unknown]
